FAERS Safety Report 9087062 (Version 1)
Quarter: 2013Q1

REPORT INFORMATION
  Report Type: Report from Study
  Country: US (occurrence: US)
  Receive Date: 20130130
  Receipt Date: 20130130
  Transmission Date: 20140127
  Serious: Yes (Hospitalization)
  Sender: FDA-Public Use
  Company Number: US-ABBOTT-12P-163-0955523-00

PATIENT
  Sex: Male
  Weight: 81.72 kg

DRUGS (4)
  1. HUMIRA 40 MG/0.8 ML PEN [Suspect]
     Indication: CROHN^S DISEASE
     Route: 058
     Dates: start: 201105, end: 201202
  2. HUMIRA 40 MG/0.8 ML PEN [Suspect]
     Route: 058
     Dates: start: 201205
  3. 6-MP [Suspect]
     Indication: CROHN^S DISEASE
     Dates: start: 201205, end: 201207
  4. TRAMADOL [Concomitant]
     Indication: ABDOMINAL PAIN
     Dosage: PRN PAIN
     Route: 048

REACTIONS (4)
  - Crohn^s disease [Recovered/Resolved]
  - Abdominal pain [Recovering/Resolving]
  - Acne [Recovering/Resolving]
  - White blood cell count decreased [Unknown]
